FAERS Safety Report 4886266-2 (Version None)
Quarter: 2006Q1

REPORT INFORMATION
  Report Type: 
  Country: None (occurrence: None)
  Receive Date: 20060118
  Receipt Date: 20060118
  Transmission Date: 20060701
  Serious: Yes (Life-Threatening, Hospitalization, Disabling)
  Sender: FDA-Public Use
  Company Number: None

PATIENT
  Age: 32 Year
  Sex: Female
  Weight: 81.36 kg

DRUGS (1)
  1. HURRICAINE BENZOCAINE 20% BEUTLICH L.P. PHARMACEUTICALS [Suspect]
     Indication: PREOPERATIVE CARE
     Route: 048
     Dates: start: 20051230, end: 20051230

REACTIONS (3)
  - CYANOSIS [None]
  - METHAEMOGLOBINAEMIA [None]
  - OXYGEN SATURATION DECREASED [None]
